FAERS Safety Report 13496934 (Version 33)
Quarter: 2018Q2

REPORT INFORMATION
  Report Type: Report from Study
  Country: DE (occurrence: DE)
  Receive Date: 20170428
  Receipt Date: 20180504
  Transmission Date: 20180711
  Serious: Yes (Life-Threatening, Hospitalization)
  Sender: FDA-Public Use
  Company Number: DE-B.I. PHARMACEUTICALS,INC./RIDGEFIELD-2017-BI-023596

PATIENT
  Age: 65 Year
  Sex: Male
  Weight: 90 kg

DRUGS (17)
  1. DOCETAXEL. [Suspect]
     Active Substance: DOCETAXEL
     Indication: LUNG ADENOCARCINOMA
     Dosage: TOTAL DAILY DOSE: 150 MG/M2 BSA (BODY SURFACE AREA)
     Route: 042
     Dates: start: 20170418
  2. PANTOPRAZOL [Concomitant]
     Active Substance: PANTOPRAZOLE SODIUM
     Indication: PROPHYLAXIS
     Route: 048
     Dates: start: 20170501
  3. NORVASC [Concomitant]
     Active Substance: AMLODIPINE BESYLATE
     Indication: PROPHYLAXIS
     Route: 048
     Dates: start: 20170425
  4. HYLO-VISION [Concomitant]
     Active Substance: HYALURONATE SODIUM
     Indication: ADVERSE EVENT
     Route: 031
     Dates: start: 20170509
  5. VARGATEF [Suspect]
     Active Substance: NINTEDANIB
     Route: 048
     Dates: end: 20180103
  6. BRETARIS GENUAIR [Concomitant]
     Active Substance: ACLIDINIUM BROMIDE
     Indication: PRE-EXISTING DISEASE
     Route: 055
  7. VARGATEF [Suspect]
     Active Substance: NINTEDANIB
     Route: 048
     Dates: end: 20171006
  8. ASS RATIOPHARM [Concomitant]
     Active Substance: ASPIRIN
     Indication: PRE-EXISTING DISEASE
     Route: 048
     Dates: start: 20170414
  9. NACL [Concomitant]
     Active Substance: SODIUM CHLORIDE
     Indication: PROPHYLAXIS
     Route: 042
     Dates: start: 20170428
  10. ALDACTONE [Concomitant]
     Active Substance: SPIRONOLACTONE
     Indication: PROPHYLAXIS
     Route: 048
     Dates: start: 20161124
  11. LOESNESIUM [Concomitant]
     Indication: PROPHYLAXIS
     Route: 048
  12. VARGATEF [Suspect]
     Active Substance: NINTEDANIB
     Route: 048
     Dates: end: 20170620
  13. PREDNISOLON [Concomitant]
     Active Substance: PREDNISOLONE
     Indication: PRE-EXISTING DISEASE
     Route: 048
  14. AQUAPHOR [Concomitant]
     Active Substance: PETROLATUM
     Indication: PRE-EXISTING DISEASE
     Route: 048
  15. LEVOTHYROXINENATRIUM TEVA [Concomitant]
     Indication: PRE-EXISTING DISEASE
     Route: 048
  16. SYMBICORT [Concomitant]
     Active Substance: BUDESONIDE\FORMOTEROL FUMARATE DIHYDRATE
     Indication: PRE-EXISTING DISEASE
     Route: 055
  17. VARGATEF [Suspect]
     Active Substance: NINTEDANIB
     Indication: LUNG ADENOCARCINOMA
     Route: 048
     Dates: start: 20170419, end: 20170424

REACTIONS (18)
  - C-reactive protein increased [Recovered/Resolved]
  - Weight decreased [Recovered/Resolved]
  - Palmar-plantar erythrodysaesthesia syndrome [Unknown]
  - C-reactive protein increased [Recovered/Resolved]
  - Decreased appetite [Recovered/Resolved]
  - Vision blurred [Not Recovered/Not Resolved]
  - Bronchitis [Recovered/Resolved]
  - Stomatitis [Recovered/Resolved]
  - Hyponatraemia [Not Recovered/Not Resolved]
  - White blood cell count decreased [Recovered/Resolved]
  - Febrile neutropenia [Recovered/Resolved]
  - Nausea [Recovered/Resolved]
  - White blood cell count decreased [Recovered/Resolved]
  - Constipation [Recovered/Resolved]
  - Abdominal pain upper [Recovered/Resolved]
  - Tumour pain [Unknown]
  - Hypokalaemia [Recovered/Resolved]
  - Diarrhoea [Unknown]

NARRATIVE: CASE EVENT DATE: 20170425
